FAERS Safety Report 9808770 (Version 1)
Quarter: 2014Q1

REPORT INFORMATION
  Report Type: Spontaneous
  Country: US (occurrence: US)
  Receive Date: 20140110
  Receipt Date: 20140110
  Transmission Date: 20141002
  Serious: Yes (Death)
  Sender: FDA-Public Use
  Company Number: US-BAYER-2014-004086

PATIENT
  Age: 51 Year
  Sex: Female

DRUGS (6)
  1. DIPHENHYDRAMINE HYDROCHLORIDE [Suspect]
     Route: 065
  2. MORPHINE [Suspect]
     Route: 065
  3. OXYCODON [Suspect]
     Route: 065
  4. TRAMADOL [Suspect]
     Route: 065
  5. TOPIRAMATE [Suspect]
     Route: 065
  6. AMITRIPTYLIN [Suspect]
     Route: 065

REACTIONS (1)
  - Toxicity to various agents [Fatal]
